FAERS Safety Report 5677399-1 (Version None)
Quarter: 2008Q1

REPORT INFORMATION
  Report Type: 
  Country: None (occurrence: None)
  Receive Date: 20080320
  Receipt Date: 20080320
  Transmission Date: 20080703
  Serious: No
  Sender: FDA-Public Use
  Company Number: None

PATIENT
  Age: 34 Year
  Sex: Female
  Weight: 63.5036 kg

DRUGS (2)
  1. TRAMADOL HCL [Suspect]
     Indication: PAIN
     Dosage: ONE 2-3XDAY
     Dates: start: 20080101, end: 20080201
  2. GABAPENTIN [Suspect]
     Indication: NEURALGIA
     Dosage: ONE 4XDAY 2-3 WEEKS
     Dates: start: 20080201

REACTIONS (7)
  - DRUG INEFFECTIVE [None]
  - FORMICATION [None]
  - HYPERAESTHESIA [None]
  - MALAISE [None]
  - PAIN [None]
  - PHARMACEUTICAL PRODUCT COMPLAINT [None]
  - THERAPEUTIC RESPONSE UNEXPECTED WITH DRUG SUBSTITUTION [None]
